FAERS Safety Report 14934092 (Version 1)
Quarter: 2018Q2

REPORT INFORMATION
  Report Type: Report from Study
  Country: US (occurrence: US)
  Receive Date: 20180524
  Receipt Date: 20180524
  Transmission Date: 20180711
  Serious: Yes (Other)
  Sender: FDA-Public Use
  Company Number: US-JNJFOC-20180526499

PATIENT
  Sex: Male

DRUGS (8)
  1. ALLOPURINOL. [Concomitant]
     Active Substance: ALLOPURINOL
  2. INOSITOL [Concomitant]
     Active Substance: INOSITOL
  3. CAMELLIA SINENSIS [Concomitant]
     Active Substance: GREEN TEA LEAF
  4. VITAMIN D [Concomitant]
     Active Substance: CHOLECALCIFEROL
  5. ELIQUIS [Concomitant]
     Active Substance: APIXABAN
  6. CURCUMA LONGA [Concomitant]
     Active Substance: HERBALS\TURMERIC
  7. MULTIVITAMINS [Concomitant]
     Active Substance: VITAMINS
  8. IMBRUVICA [Suspect]
     Active Substance: IBRUTINIB
     Indication: CHRONIC LYMPHOCYTIC LEUKAEMIA
     Route: 048
     Dates: start: 20180215

REACTIONS (1)
  - Pulmonary embolism [Unknown]
